FAERS Safety Report 20034567 (Version 2)
Quarter: 2022Q3

REPORT INFORMATION
  Report Type: Spontaneous
  Country: US (occurrence: US)
  Receive Date: 20211104
  Receipt Date: 20220825
  Transmission Date: 20221027
  Serious: Yes (Other)
  Sender: FDA-Public Use
  Company Number: US-009507513-2111USA000833

PATIENT
  Sex: Female

DRUGS (2)
  1. KEYTRUDA [Suspect]
     Active Substance: PEMBROLIZUMAB
     Indication: Uterine cancer
     Dosage: UNK
  2. LENVATINIB MESYLATE [Suspect]
     Active Substance: LENVATINIB MESYLATE
     Indication: Uterine cancer
     Dosage: 20 MG, UNK
     Route: 048
     Dates: start: 202110, end: 20220121

REACTIONS (12)
  - Neuropathy peripheral [Unknown]
  - Balance disorder [Unknown]
  - Dyspepsia [Unknown]
  - Blood pressure increased [Unknown]
  - Asthenia [Unknown]
  - Diarrhoea [Unknown]
  - Decreased appetite [Unknown]
  - Feeling abnormal [Unknown]
  - Oral pain [Unknown]
  - Abdominal discomfort [Unknown]
  - Peripheral swelling [Unknown]
  - Dyspnoea [Unknown]

NARRATIVE: CASE EVENT DATE: 20211001
